FAERS Safety Report 16106183 (Version 4)
Quarter: 2020Q2

REPORT INFORMATION
  Report Type: Spontaneous
  Country: FR (occurrence: FR)
  Receive Date: 20190322
  Receipt Date: 20200522
  Transmission Date: 20200713
  Serious: Yes (Hospitalization)
  Sender: FDA-Public Use
  Company Number: FR-ELI_LILLY_AND_COMPANY-FR201903010196

PATIENT
  Age: 62 Year
  Sex: Female

DRUGS (1)
  1. EVISTA [Suspect]
     Active Substance: RALOXIFENE HYDROCHLORIDE
     Indication: OSTEOPOROSIS
     Dosage: 60 MG, DAILY
     Route: 048
     Dates: start: 201802, end: 20190114

REACTIONS (2)
  - Jaundice [Recovered/Resolved]
  - Hepatitis [Recovering/Resolving]

NARRATIVE: CASE EVENT DATE: 20181023
